FAERS Safety Report 13956287 (Version 1)
Quarter: 2017Q3

REPORT INFORMATION
  Report Type: Report from Study
  Country: CA (occurrence: CA)
  Receive Date: 20170911
  Receipt Date: 20170911
  Transmission Date: 20171128
  Serious: Yes (Death, Other)
  Sender: FDA-Public Use
  Company Number: CA-BRISTOL-MYERS SQUIBB COMPANY-BMS-2017-011989

PATIENT
  Age: 67 Year
  Sex: Male

DRUGS (3)
  1. NIVOLUMAB [Suspect]
     Active Substance: NIVOLUMAB
     Indication: NON-SMALL CELL LUNG CANCER
     Dosage: 143 MG, Q2WK
     Route: 042
     Dates: start: 20170124
  2. NIVOLUMAB [Suspect]
     Active Substance: NIVOLUMAB
     Indication: PRODUCT USED FOR UNKNOWN INDICATION
     Dosage: 3 MG/KG, Q2WK
     Route: 065
     Dates: end: 20170412
  3. NIVOLUMAB [Suspect]
     Active Substance: NIVOLUMAB
     Indication: PRODUCT USED FOR UNKNOWN INDICATION
     Dosage: 243 MG, Q2WK
     Route: 042
     Dates: start: 20170208

REACTIONS (16)
  - Aspiration pleural cavity [Unknown]
  - Dyspnoea [Unknown]
  - Dry mouth [Unknown]
  - Oesophagitis [Unknown]
  - Dysphagia [Unknown]
  - Nausea [Unknown]
  - Fatigue [Unknown]
  - Vision blurred [Unknown]
  - Abdominal pain [Unknown]
  - Death [Fatal]
  - Back pain [Unknown]
  - Peripheral swelling [Unknown]
  - Pleural effusion [Unknown]
  - Influenza like illness [Recovered/Resolved]
  - Decreased appetite [Unknown]
  - Pain [Unknown]

NARRATIVE: CASE EVENT DATE: 20170131
